FAERS Safety Report 5372712-7 (Version None)
Quarter: 2007Q2

REPORT INFORMATION
  Report Type: 
  Country: None (occurrence: None)
  Receive Date: 20070619
  Receipt Date: 20060614
  Transmission Date: 20071010
  Serious: Yes (Hospitalization)
  Sender: FDA-Public Use
  Company Number: WAES 0606USA02782

PATIENT
  Sex: Female

DRUGS (2)
  1. COZAAR [Suspect]
     Indication: BLOOD PRESSURE
     Dosage: 100 MG/BID/PO
     Route: 048
  2. [THERAPY UNSPECIFIED] [Concomitant]

REACTIONS (3)
  - ADVERSE EVENT [None]
  - NO ADVERSE EFFECT [None]
  - OVERDOSE [None]
